FAERS Safety Report 19231552 (Version 1)
Quarter: 2021Q2

REPORT INFORMATION
  Report Type: Spontaneous
  Country: FR (occurrence: FR)
  Receive Date: 20210507
  Receipt Date: 20210507
  Transmission Date: 20210717
  Serious: Yes (Congenital Anomaly, Other)
  Sender: FDA-Public Use
  Company Number: FR-TAKEDA-2021TUS028509

PATIENT

DRUGS (1)
  1. VELCADE [Suspect]
     Active Substance: BORTEZOMIB
     Indication: POEMS SYNDROME
     Dosage: UNK
     Route: 064
     Dates: start: 201905, end: 201912

REACTIONS (2)
  - Chondrodystrophy [Not Recovered/Not Resolved]
  - Foetal exposure during pregnancy [Unknown]
